FAERS Safety Report 23450074 (Version 2)
Quarter: 2024Q1

REPORT INFORMATION
  Report Type: Spontaneous
  Country: ES (occurrence: ES)
  Receive Date: 20240129
  Receipt Date: 20240202
  Transmission Date: 20240410
  Serious: Yes (Other)
  Sender: FDA-Public Use
  Company Number: ES-LUNDBECK-DKLU3072905

PATIENT
  Age: 69 Year
  Sex: Female

DRUGS (6)
  1. BRINTELLIX [Suspect]
     Active Substance: VORTIOXETINE HYDROBROMIDE
     Indication: Product used for unknown indication
     Dosage: 0.5 DOSAGE FORM
     Route: 065
     Dates: start: 20240118
  2. LORMETAZEPAM [Concomitant]
     Active Substance: LORMETAZEPAM
     Indication: Anxiety
     Dosage: 2 DOSAGE FORM, QD
     Route: 065
  3. LORMETAZEPAM [Concomitant]
     Active Substance: LORMETAZEPAM
     Indication: Sleep disorder
  4. Microlax [Concomitant]
     Indication: Product used for unknown indication
     Dosage: UNK
     Route: 065
  5. ALPRAZOLAM [Concomitant]
     Active Substance: ALPRAZOLAM
     Indication: Product used for unknown indication
     Dosage: UNK
     Route: 065
  6. LORAZEPAM [Concomitant]
     Active Substance: LORAZEPAM
     Indication: Product used for unknown indication
     Dosage: UNK
     Route: 065

REACTIONS (19)
  - Intestinal obstruction [Unknown]
  - Insomnia [Unknown]
  - Eye pain [Unknown]
  - Asthenia [Unknown]
  - Abdominal pain upper [Unknown]
  - Pain [Unknown]
  - Apathy [Unknown]
  - Nervousness [Unknown]
  - Sleep disorder [Unknown]
  - Wrong technique in product usage process [Unknown]
  - Asthenia [Unknown]
  - Feeling cold [Unknown]
  - Feeling abnormal [Unknown]
  - Visual impairment [Unknown]
  - Anxiety [Unknown]
  - Dizziness [Unknown]
  - Vomiting [Unknown]
  - Nausea [Unknown]
  - Hyperhidrosis [Unknown]
